FAERS Safety Report 8083362-6 (Version None)
Quarter: 2012Q1

REPORT INFORMATION
  Report Type: 
  Country: None (occurrence: None)
  Receive Date: 20120127
  Receipt Date: 20110114
  Transmission Date: 20120608
  Serious: No
  Sender: FDA-Public Use
  Company Number: US-ABBOTT-11P-163-0697819-00

PATIENT
  Age: 63 Year
  Sex: Female

DRUGS (5)
  1. ENJUVIA [Concomitant]
     Indication: HORMONE REPLACEMENT THERAPY
  2. LIALDA [Concomitant]
     Indication: CROHN'S DISEASE
  3. CLONIDINE [Concomitant]
     Indication: HYPERTENSION
  4. LASIX [Concomitant]
     Indication: FLUID RETENTION
  5. HUMIRA [Suspect]
     Indication: CROHN'S DISEASE
     Dates: start: 20101001

REACTIONS (1)
  - INJECTION SITE PAIN [None]
